FAERS Safety Report 5354623-6 (Version None)
Quarter: 2007Q2

REPORT INFORMATION
  Report Type: 
  Country: None (occurrence: None)
  Receive Date: 20070608
  Receipt Date: 20061011
  Transmission Date: 20071010
  Serious: Yes (Other)
  Sender: FDA-Public Use
  Company Number: 23100365

PATIENT
  Age: 68 Year
  Sex: Male

DRUGS (7)
  1. ARGATROBAN [Suspect]
     Indication: CEREBRAL INFARCTION
     Dosage: 60 MG DAILY
     Dates: start: 20060117, end: 20060119
  2. ARGATROBAN [Suspect]
     Indication: CEREBRAL INFARCTION
     Dosage: 20 MG DAILY
     Dates: start: 20060120, end: 20060120
  3. EDARAVONE [Concomitant]
  4. GLYCEROL 2.6% [Concomitant]
  5. FAMOTIDINE [Concomitant]
  6. GLICLAZIDE [Concomitant]
  7. ASPIRIN [Concomitant]

REACTIONS (4)
  - CEREBRAL INFARCTION [None]
  - CONDITION AGGRAVATED [None]
  - DYSARTHRIA [None]
  - HEMIPLEGIA [None]
